FAERS Safety Report 12573297 (Version 1)
Quarter: 2016Q3

REPORT INFORMATION
  Report Type: Spontaneous
  Country: CA (occurrence: None)
  Receive Date: 20160719
  Receipt Date: 20160719
  Transmission Date: 20161109
  Serious: Yes (Other)
  Sender: FDA-Public Use
  Company Number: None

PATIENT
  Age: 52 Year
  Sex: Female
  Weight: 68.04 kg

DRUGS (1)
  1. ACT-TERBINAFINE 250 MG, 250 MG DIN 02254727 [Suspect]
     Active Substance: TERBINAFINE
     Indication: ONYCHOMYCOSIS
     Dosage: 1 CAPSULE(S) IN THE MORNING TAKEN BY MOUTH
     Route: 048
     Dates: start: 20160530, end: 20160712

REACTIONS (5)
  - Social avoidant behaviour [None]
  - Depression [None]
  - Dysgeusia [None]
  - Ageusia [None]
  - Weight decreased [None]

NARRATIVE: CASE EVENT DATE: 20160707
